FAERS Safety Report 9718216 (Version 1)
Quarter: 2013Q4

REPORT INFORMATION
  Report Type: Spontaneous
  Country: JP (occurrence: JP)
  Receive Date: 20131127
  Receipt Date: 20131127
  Transmission Date: 20140711
  Serious: Yes (Other)
  Sender: FDA-Public Use
  Company Number: JP-ACTAVIS-2013-21150

PATIENT
  Age: 67 Year
  Sex: Male
  Weight: 62 kg

DRUGS (8)
  1. FLUVOXAMINE MALEATE (AELLC) [Suspect]
     Indication: DEPRESSION
     Dosage: 150 MG, DAILY
     Route: 065
  2. CISPLATIN (UNKNOWN) [Interacting]
     Indication: SMALL CELL LUNG CANCER
     Dosage: CYCLICAL; 3 COURSES
     Route: 065
  3. IRINOTECAN (UNKNOWN) [Interacting]
     Indication: SMALL CELL LUNG CANCER
     Dosage: CYCLICAL; 3 COURSES (60 MG/M2 ON DAYS 1 AND 8)
     Route: 065
  4. LEVOTHYROXINE SODIUM [Concomitant]
     Indication: HYPOTHYROIDISM
     Dosage: 150 ?G, DAILY
     Route: 065
  5. LEVOTHYROXINE SODIUM [Concomitant]
     Dosage: 200 ?G, DAILY
     Route: 065
  6. OXYCODONE [Concomitant]
     Indication: PAIN
     Dosage: 10 MG, UNK
     Route: 065
  7. GRANISETRON [Concomitant]
     Indication: ANTIEMETIC SUPPORTIVE CARE
     Dosage: UNKNOWN
     Route: 065
  8. METOCLOPRAMIDE [Concomitant]
     Indication: ANTIEMETIC SUPPORTIVE CARE
     Dosage: UNKNOWN
     Route: 065

REACTIONS (2)
  - Serotonin syndrome [Recovered/Resolved]
  - Drug interaction [Recovering/Resolving]
